FAERS Safety Report 17347378 (Version 1)
Quarter: 2020Q1

REPORT INFORMATION
  Report Type: Report from Study
  Country: US (occurrence: US)
  Receive Date: 20200129
  Receipt Date: 20200129
  Transmission Date: 20200409
  Serious: No
  Sender: FDA-Public Use
  Company Number: US-EXELIXIS-CABO-19022521

PATIENT
  Sex: Male

DRUGS (1)
  1. CABOMETYX [Suspect]
     Active Substance: CABOZANTINIB S-MALATE
     Indication: RENAL CANCER
     Dosage: 60 MG, QD (PM WITHOUT FOOD)
     Dates: start: 20190515

REACTIONS (8)
  - Mass [Not Recovered/Not Resolved]
  - Diarrhoea [Unknown]
  - Pulmonary thrombosis [Not Recovered/Not Resolved]
  - Insomnia [Not Recovered/Not Resolved]
  - Hypertension [Not Recovered/Not Resolved]
  - Constipation [Unknown]
  - Paranasal sinus hypersecretion [Not Recovered/Not Resolved]
  - Malignant neoplasm progression [Unknown]
